FAERS Safety Report 25271106 (Version 1)
Quarter: 2025Q2

REPORT INFORMATION
  Report Type: Spontaneous
  Country: US (occurrence: US)
  Receive Date: 20250506
  Receipt Date: 20250506
  Transmission Date: 20250717
  Serious: No
  Sender: DAIICHI
  Company Number: US-DAIICHI SANKYO, INC.-DS-2025-139307-USAA

PATIENT
  Sex: Female

DRUGS (1)
  1. DATROWAY [Suspect]
     Active Substance: DATOPOTAMAB DERUXTECAN-DLNK
     Indication: Breast cancer metastatic
     Dosage: UNK UNK, ONCE EVERY 3 WK
     Route: 065
     Dates: start: 202504, end: 202504

REACTIONS (1)
  - Stomatitis [Unknown]

NARRATIVE: CASE EVENT DATE: 20250401
